FAERS Safety Report 7677093-1 (Version None)
Quarter: 2011Q3

REPORT INFORMATION
  Report Type: 
  Country: None (occurrence: None)
  Receive Date: 20110811
  Receipt Date: 20110801
  Transmission Date: 20111222
  Serious: Yes (Hospitalization)
  Sender: FDA-Public Use
  Company Number: US-JNJFOC-20080405564

PATIENT
  Sex: Female
  Weight: 59.6 kg

DRUGS (9)
  1. PREDNISONE [Concomitant]
  2. PREDNISONE [Concomitant]
  3. INFLIXIMAB [Suspect]
     Indication: COLITIS ULCERATIVE
     Dosage: TOTAL 7 DOSES
     Dates: start: 20071217
  4. ANTIBIOTIC [Concomitant]
  5. PREDNISONE [Concomitant]
  6. IRON SULFATETHIAMIN COMPOUND TAB [Concomitant]
  7. INFLIXIMAB [Suspect]
     Dates: start: 20070308
  8. ANTIBIOTIC [Concomitant]
  9. PREVACID [Concomitant]

REACTIONS (1)
  - COLITIS ULCERATIVE [None]
